FAERS Safety Report 24742862 (Version 1)
Quarter: 2024Q4

REPORT INFORMATION
  Report Type: Spontaneous
  Country: ES (occurrence: ES)
  Receive Date: 20241217
  Receipt Date: 20241217
  Transmission Date: 20250114
  Serious: Yes (Other)
  Sender: TEVA
  Company Number: None

PATIENT
  Age: 63 Year
  Sex: Male

DRUGS (5)
  1. RAMIPRIL [Suspect]
     Active Substance: RAMIPRIL
     Indication: Hypertension
     Dosage: RAMIPRIL TEVAGEN EFG TABLETS, 28 TABLETS
     Route: 048
     Dates: start: 20180801, end: 20240908
  2. METFORMIN HYDROCHLORIDE [Concomitant]
     Active Substance: METFORMIN HYDROCHLORIDE
     Indication: Product used for unknown indication
     Dosage: METFORMINA CINFA EFG, 50 TABLETS HALF AN 850 MG TABLET EVERY 12 HOURS
     Route: 048
     Dates: start: 20171019
  3. ROSUVASTATINA KERN [Concomitant]
     Indication: Product used for unknown indication
     Dosage: EFG, 28 TABLETS
     Route: 048
     Dates: start: 20230523
  4. METAMIZOLE [Concomitant]
     Active Substance: METAMIZOLE
     Indication: Product used for unknown indication
     Dosage: EFG, 20 CAPSULES
     Route: 048
     Dates: start: 20211115
  5. PARACETAMOL CINFA [Concomitant]
     Indication: Product used for unknown indication
     Dosage: EFG, 40 TABLETS
     Route: 048
     Dates: start: 20211115

REACTIONS (1)
  - Lip oedema [Recovered/Resolved]

NARRATIVE: CASE EVENT DATE: 20240908
